FAERS Safety Report 4391198-2 (Version None)
Quarter: 2004Q2

REPORT INFORMATION
  Report Type: 
  Country: None (occurrence: None)
  Receive Date: 20040621
  Receipt Date: 20040310
  Transmission Date: 20050107
  Serious: Yes (Hospitalization)
  Sender: FDA-Public Use
  Company Number: GBR-2004-0000945

PATIENT
  Age: 68 Year
  Sex: Male
  Weight: 85.9 kg

DRUGS (3)
  1. IRON (IRON) [Suspect]
  2. NATEGLINIDA  VS PLACEBO (CODE NOT BROKEN) [Concomitant]
  3. VALSARTAN OR PLACEBO [Concomitant]

REACTIONS (2)
  - CONSTIPATION [None]
  - NAUSEA [None]
